FAERS Safety Report 8237970-X (Version None)
Quarter: 2012Q1

REPORT INFORMATION
  Report Type: 
  Country: None (occurrence: None)
  Receive Date: 20120327
  Receipt Date: 20120319
  Transmission Date: 20120608
  Serious: Yes (Other)
  Sender: FDA-Public Use
  Company Number: US-JNJFOC-20120309476

PATIENT
  Sex: Female
  Weight: 88.91 kg

DRUGS (6)
  1. PROPAFENONE HCL [Concomitant]
     Indication: CARDIAC DISORDER
     Route: 048
  2. XARELTO [Suspect]
     Indication: ATRIAL FIBRILLATION
     Route: 048
     Dates: start: 20120301
  3. METFORMIN HCL [Concomitant]
     Indication: DIABETES MELLITUS
     Dosage: 5/500MG/TWICE A DAY
     Route: 048
  4. CARVEDILOL [Concomitant]
     Indication: CARDIAC DISORDER
     Route: 048
  5. INSULIN [Concomitant]
     Indication: DIABETES MELLITUS
     Route: 058
  6. FUROSEMIDE [Concomitant]
     Indication: CARDIAC DISORDER
     Route: 048

REACTIONS (2)
  - MUSCULAR WEAKNESS [None]
  - FLUID RETENTION [None]
